FAERS Safety Report 8607935 (Version 2)
Quarter: 2013Q3

REPORT INFORMATION
  Report Type: Spontaneous
  Country: US (occurrence: US)
  Receive Date: 20120611
  Receipt Date: 20130723
  Transmission Date: 20140515
  Serious: Yes (Hospitalization, Other)
  Sender: FDA-Public Use
  Company Number: US-ASTRAZENECA-2012SE35278

PATIENT
  Age: 18804 Day
  Sex: Male

DRUGS (38)
  1. NEXIUM [Suspect]
     Indication: GASTRIC DISORDER
     Dosage: TWO TIMES DAILY
     Route: 048
     Dates: start: 1999, end: 2007
  2. NEXIUM [Suspect]
     Indication: GASTRIC DISORDER
     Route: 048
     Dates: start: 20020415
  3. PRILOSEC [Suspect]
     Route: 048
     Dates: start: 2001, end: 2007
  4. PROTONIX [Concomitant]
     Dates: start: 2001
  5. ZANTAC [Concomitant]
     Dates: start: 1990
  6. PEPTO [Concomitant]
  7. MYLANTA [Concomitant]
  8. ROLAIDS [Concomitant]
  9. THYAMIN [Concomitant]
  10. ASPIRIN [Concomitant]
     Route: 048
  11. LISINOPRIL [Concomitant]
     Route: 048
  12. FRAGMIN [Concomitant]
  13. FLAGYL [Concomitant]
     Route: 048
  14. AMNITRYPTILYNE [Concomitant]
     Route: 048
  15. CLONIDINE [Concomitant]
  16. LABATOLOL [Concomitant]
     Route: 048
  17. MORPHINE SULFATE [Concomitant]
     Route: 048
  18. METHADONE [Concomitant]
     Route: 048
  19. LEVAQUIN [Concomitant]
  20. HYDROXIZINE [Concomitant]
     Route: 048
  21. GABAPENTIN [Concomitant]
     Route: 048
  22. WARFARIN [Concomitant]
  23. SIMVASTATIN [Concomitant]
  24. ALBUTEROL [Concomitant]
  25. OXYCODONE [Concomitant]
  26. ANDRODERM [Concomitant]
  27. LOVENOX [Concomitant]
  28. SERTRALINE [Concomitant]
  29. CYCLOBENZAPRINE [Concomitant]
  30. IBUPROFEN [Concomitant]
  31. ISOSORBIDE [Concomitant]
  32. AMLODIPINE [Concomitant]
  33. MELATONIN [Concomitant]
  34. TAGAMET [Concomitant]
  35. METRONIDAZOLE [Concomitant]
  36. HYDROCORTISONE [Concomitant]
  37. FERROUS SULFATE [Concomitant]
     Route: 048
  38. LASIX [Concomitant]

REACTIONS (25)
  - Anaemia [Unknown]
  - Cerebrovascular accident [Unknown]
  - Coma [Unknown]
  - Hepatitis C [Unknown]
  - Gastrointestinal stoma complication [Unknown]
  - Limb discomfort [Unknown]
  - Musculoskeletal discomfort [Unknown]
  - Osteoporosis [Unknown]
  - Androgen deficiency [Unknown]
  - Arthritis [Unknown]
  - Atrophy [Unknown]
  - Coronary artery disease [Unknown]
  - Disturbance in attention [Unknown]
  - Drug abuse [Unknown]
  - Joint injury [Unknown]
  - Tibia fracture [Unknown]
  - Peripheral vascular disorder [Unknown]
  - Vitamin D deficiency [Unknown]
  - Fibula fracture [Unknown]
  - Neuropathy peripheral [Unknown]
  - Osteomyelitis [Unknown]
  - Fall [Unknown]
  - Rib fracture [Unknown]
  - Clavicle fracture [Unknown]
  - Joint injury [Unknown]
